FAERS Safety Report 8873493 (Version 1)
Quarter: 2012Q4

REPORT INFORMATION
  Report Type: Report from Study
  Country: US (occurrence: US)
  Receive Date: 20121030
  Receipt Date: 20121030
  Transmission Date: 20130627
  Serious: No
  Sender: FDA-Public Use
  Company Number: US-ABBOTT-12P-163-0920349-00

PATIENT
  Sex: Female

DRUGS (1)
  1. LUPRON DEPOT 3.75 MG [Suspect]
     Indication: UTERINE LEIOMYOMA
     Dates: start: 2002

REACTIONS (9)
  - Uterine leiomyoma [Unknown]
  - Uterine leiomyoma [Unknown]
  - Pain [Not Recovered/Not Resolved]
  - Abdominal discomfort [Recovered/Resolved]
  - Gait disturbance [Not Recovered/Not Resolved]
  - Trigger finger [Not Recovered/Not Resolved]
  - Asthenia [Not Recovered/Not Resolved]
  - Arthralgia [Unknown]
  - Muscular weakness [Unknown]
